FAERS Safety Report 4849401-8 (Version None)
Quarter: 2005Q4

REPORT INFORMATION
  Report Type: 
  Country: None (occurrence: None)
  Receive Date: 20051207
  Receipt Date: 20051125
  Transmission Date: 20060501
  Serious: Yes (Hospitalization)
  Sender: FDA-Public Use
  Company Number: 2005155324

PATIENT
  Age: 58 Year
  Sex: Female
  Weight: 51 kg

DRUGS (5)
  1. CAMPTOSAR [Suspect]
     Indication: COLON CANCER
     Dosage: 220 MG (CYCLIC INTERVAL:  EVERY 15 DAYS), INTRAVENOUS
     Route: 042
     Dates: start: 20050217
  2. ATROPINE [Suspect]
     Indication: ILL-DEFINED DISORDER
     Dosage: 0.25 MG (INTERVAL: EVERY DAY), SUBCUTANEOUS
     Route: 058
     Dates: start: 20050217
  3. ONDANSETRON [Suspect]
     Indication: ILL-DEFINED DISORDER
     Dosage: 8 MG (INTERVAL: EVERY DAY), INTRAVENOUS
     Route: 042
     Dates: start: 20050512
  4. CETUXIMAB (CETUXIMAB) [Concomitant]
  5. POLARAMINE [Concomitant]

REACTIONS (3)
  - ANGIONEUROTIC OEDEMA [None]
  - RASH MORBILLIFORM [None]
  - RASH PRURITIC [None]
